FAERS Safety Report 8177872-0 (Version None)
Quarter: 2012Q1

REPORT INFORMATION
  Report Type: 
  Country: None (occurrence: None)
  Receive Date: 20120301
  Receipt Date: 20120223
  Transmission Date: 20120608
  Serious: Yes (Other)
  Sender: FDA-Public Use
  Company Number: ES-PFIZER INC-2012023940

PATIENT
  Sex: Female

DRUGS (2)
  1. ZYVOX [Suspect]
     Indication: SEPSIS
  2. FLUCONAZOLE [Concomitant]
     Indication: SEPSIS

REACTIONS (1)
  - HYPOACUSIS [None]
